FAERS Safety Report 9681611 (Version 1)
Quarter: 2013Q4

REPORT INFORMATION
  Report Type: Spontaneous
  Country: US (occurrence: US)
  Receive Date: 20131111
  Receipt Date: 20131111
  Transmission Date: 20140711
  Serious: No
  Sender: FDA-Public Use
  Company Number: US-ENDO PHARMACEUTICALS INC.-PRIM20120004

PATIENT
  Sex: Male

DRUGS (1)
  1. PRIMIDONE TABLETS 250MG [Suspect]
     Indication: TREMOR
     Route: 048
     Dates: start: 201201

REACTIONS (1)
  - Medication residue present [Not Recovered/Not Resolved]
